FAERS Safety Report 18778111 (Version 1)
Quarter: 2021Q1

REPORT INFORMATION
  Report Type: Report from Study
  Country: BR (occurrence: BR)
  Receive Date: 20210123
  Receipt Date: 20210123
  Transmission Date: 20210419
  Serious: Yes (Other)
  Sender: FDA-Public Use
  Company Number: BR-TAKEDA-BR202007832

PATIENT
  Sex: Male
  Weight: 21 kg

DRUGS (3)
  1. HEMO?8R [Suspect]
     Active Substance: ANTIHEMOPHILIC FACTOR, HUMAN RECOMBINANT
     Dosage: 1000 INTERNATIONAL UNIT, 2X/DAY:BID
     Route: 042
     Dates: start: 20200226
  2. HEMO?8R [Suspect]
     Active Substance: ANTIHEMOPHILIC FACTOR, HUMAN RECOMBINANT
     Indication: FACTOR VIII DEFICIENCY
     Dosage: 500 INTERNATIONAL UNIT, QOD
     Route: 042
     Dates: start: 20160404
  3. HEMO?8R [Suspect]
     Active Substance: ANTIHEMOPHILIC FACTOR, HUMAN RECOMBINANT
     Dosage: 1000 INTERNATIONAL UNIT, 2X/DAY:BID
     Route: 042

REACTIONS (10)
  - Injury [Recovering/Resolving]
  - Mouth haemorrhage [Not Recovered/Not Resolved]
  - Haemorrhage [Unknown]
  - Gingival bleeding [Recovered/Resolved]
  - Pigmentation disorder [Not Recovered/Not Resolved]
  - Haematoma [Recovering/Resolving]
  - Anaemia [Not Recovered/Not Resolved]
  - Incorrect dose administered [Not Recovered/Not Resolved]
  - Drug ineffective [Not Recovered/Not Resolved]
  - Weight increased [Unknown]
